FAERS Safety Report 6655224-X (Version None)
Quarter: 2010Q1

REPORT INFORMATION
  Report Type: 
  Country: None (occurrence: None)
  Receive Date: 20100329
  Receipt Date: 20100317
  Transmission Date: 20100710
  Serious: Yes (Other)
  Sender: FDA-Public Use
  Company Number: US-SANOFI-AVENTIS-2010SA016335

PATIENT
  Sex: Female

DRUGS (5)
  1. AMBIEN CR [Suspect]
     Indication: SLEEP DISORDER
     Route: 048
  2. AMBIEN CR [Suspect]
     Indication: PAIN MANAGEMENT
     Route: 048
  3. AMBIEN CR [Suspect]
     Dosage: CONSUMER TAKES 1/2 OR PART OF OF THE TABLET DURING THE DAY
     Route: 048
  4. AMBIEN CR [Suspect]
     Dosage: CONSUMER TAKES 1/2 OR PART OF OF THE TABLET DURING THE DAY
     Route: 048
  5. ALL OTHER THERAPEUTIC PRODUCTS [Concomitant]
     Indication: PAIN MANAGEMENT

REACTIONS (9)
  - DRUG DEPENDENCE [None]
  - DRUG WITHDRAWAL SYNDROME [None]
  - GALLBLADDER DISORDER [None]
  - INSOMNIA [None]
  - MOVEMENT DISORDER [None]
  - OFF LABEL USE [None]
  - PAIN [None]
  - THERAPEUTIC RESPONSE UNEXPECTED [None]
  - WRONG TECHNIQUE IN DRUG USAGE PROCESS [None]
